FAERS Safety Report 11592385 (Version 1)
Quarter: 2015Q4

REPORT INFORMATION
  Report Type: Spontaneous
  Country: US (occurrence: US)
  Receive Date: 20151005
  Receipt Date: 20151005
  Transmission Date: 20160304
  Serious: Yes (Hospitalization)
  Sender: FDA-Public Use
  Company Number: US-ALEMBIC PHARMACUETICALS LIMITED-2015SCAL000664

PATIENT
  Age: 5 Year
  Sex: Male

DRUGS (3)
  1. SYMMETREL [Suspect]
     Active Substance: AMANTADINE HYDROCHLORIDE
     Indication: PRODUCT USED FOR UNKNOWN INDICATION
     Dosage: UNK
  2. LITHIUM CARBONATE. [Suspect]
     Active Substance: LITHIUM CARBONATE
     Indication: PRODUCT USED FOR UNKNOWN INDICATION
     Dosage: 300 MG AM AND 450 MG PM
  3. RITALIN [Concomitant]
     Active Substance: METHYLPHENIDATE HYDROCHLORIDE
     Indication: PRODUCT USED FOR UNKNOWN INDICATION
     Dosage: UNK

REACTIONS (27)
  - Fluid intake reduced [Unknown]
  - Electrocardiogram QT prolonged [Recovering/Resolving]
  - Antipsychotic drug level increased [Recovering/Resolving]
  - Product use issue [Unknown]
  - Pyrexia [Unknown]
  - Electrocardiogram T wave inversion [Unknown]
  - Speech disorder [Unknown]
  - Agitation [Unknown]
  - Blood creatinine increased [Unknown]
  - Heart rate increased [Unknown]
  - Gait disturbance [Unknown]
  - Aggression [Unknown]
  - Malaise [Unknown]
  - Electrocardiogram ST segment depression [Unknown]
  - Electrocardiogram P wave abnormal [Unknown]
  - Vomiting [Unknown]
  - Depressed level of consciousness [Unknown]
  - Disorientation [Unknown]
  - Sinus node dysfunction [Recovering/Resolving]
  - Diarrhoea [Unknown]
  - Tremor [Unknown]
  - Blood thyroid stimulating hormone increased [Unknown]
  - Toxicity to various agents [Recovering/Resolving]
  - Ataxia [Unknown]
  - Electrocardiogram QRS complex prolonged [Recovering/Resolving]
  - Dysarthria [Unknown]
  - Hypotonia [Unknown]
